FAERS Safety Report 17264402 (Version 1)
Quarter: 2020Q1

REPORT INFORMATION
  Report Type: Spontaneous
  Country: US (occurrence: US)
  Receive Date: 20200113
  Receipt Date: 20200113
  Transmission Date: 20200409
  Serious: Yes (Death, Hospitalization)
  Sender: FDA-Public Use
  Company Number: US-BAYER-2020-002462

PATIENT
  Age: 51 Year
  Sex: Female

DRUGS (6)
  1. DESVENLAFAXINE. [Suspect]
     Active Substance: DESVENLAFAXINE
  2. QUETIAPINE. [Suspect]
     Active Substance: QUETIAPINE
  3. PARACETAMOL [Suspect]
     Active Substance: ACETAMINOPHEN
     Route: 048
  4. IBUPROFEN. [Suspect]
     Active Substance: IBUPROFEN
  5. CITALOPRAM [Suspect]
     Active Substance: CITALOPRAM HYDROBROMIDE
  6. OXCARBAZEPINE. [Suspect]
     Active Substance: OXCARBAZEPINE

REACTIONS (2)
  - Toxicity to various agents [Fatal]
  - Completed suicide [Fatal]
